FAERS Safety Report 25323228 (Version 1)
Quarter: 2025Q2

REPORT INFORMATION
  Report Type: Spontaneous
  Country: US (occurrence: None)
  Receive Date: 20250515
  Receipt Date: 20250515
  Transmission Date: 20250716
  Serious: Yes (Other)
  Sender: FDA-CTU
  Company Number: None

PATIENT
  Age: 79 Year
  Sex: Male

DRUGS (1)
  1. ABIRATERONE [Suspect]
     Active Substance: ABIRATERONE
     Dosage: FREQUENCY : DAILY;?
     Route: 048
     Dates: start: 20250507, end: 20250509

REACTIONS (4)
  - Ear pain [None]
  - Neck pain [None]
  - Secretion discharge [None]
  - Insomnia [None]

NARRATIVE: CASE EVENT DATE: 20250508
